FAERS Safety Report 7063824-0 (Version None)
Quarter: 2010Q4

REPORT INFORMATION
  Report Type: 
  Country: None (occurrence: None)
  Receive Date: 20101026
  Receipt Date: 20101011
  Transmission Date: 20110411
  Serious: No
  Sender: FDA-Public Use
  Company Number: US-ABBOTT-10P-163-0668318-00

PATIENT
  Sex: Female

DRUGS (2)
  1. LUPRON DEPOT [Suspect]
     Indication: ENDOMETRIOSIS
     Dates: start: 20100101
  2. PERCOCET [Concomitant]
     Indication: PRODUCT USED FOR UNKNOWN INDICATION
     Dosage: UP TO 4 PER DAY
     Dates: end: 20100701

REACTIONS (10)
  - ACNE [None]
  - ALOPECIA [None]
  - FATIGUE [None]
  - HOT FLUSH [None]
  - MENSTRUAL DISORDER [None]
  - OVARIAN DISORDER [None]
  - OVARIAN FAILURE [None]
  - PAIN [None]
  - SKIN LESION [None]
  - UNEVALUABLE EVENT [None]
